FAERS Safety Report 9036186 (Version 1)
Quarter: 2013Q1

REPORT INFORMATION
  Report Type: Spontaneous
  Country: CN (occurrence: None)
  Receive Date: 20130116
  Receipt Date: 20130116
  Transmission Date: 20140127
  Serious: Yes (Hospitalization)
  Sender: FDA-Public Use
  Company Number: VAL_01271_2013

PATIENT
  Age: 67 Year
  Sex: Male
  Weight: 75 kg

DRUGS (1)
  1. LOTENSIN /00909102/ (LOTENSIN-BENAZEPRIL HYDROCHLORIDE) (NOT SPECIFIED) [Suspect]
     Indication: HYPERTENSION
     Route: 048
     Dates: start: 20100602, end: 20100603

REACTIONS (2)
  - Cough [None]
  - Throat irritation [None]
